FAERS Safety Report 21411550 (Version 1)
Quarter: 2022Q4

REPORT INFORMATION
  Report Type: Spontaneous
  Country: FR (occurrence: FR)
  Receive Date: 20221005
  Receipt Date: 20221005
  Transmission Date: 20230113
  Serious: Yes (Hospitalization, Other)
  Sender: FDA-Public Use
  Company Number: None

PATIENT
  Age: 59 Year
  Sex: Female

DRUGS (2)
  1. ENCORAFENIB [Suspect]
     Active Substance: ENCORAFENIB
     Indication: Metastatic malignant melanoma
     Dosage: UNK
     Route: 048
     Dates: start: 20220411, end: 20220525
  2. MEKTOVI [Suspect]
     Active Substance: BINIMETINIB
     Indication: Metastatic malignant melanoma
     Dosage: UNK
     Route: 048
     Dates: start: 20220411, end: 20220525

REACTIONS (4)
  - Hepatic cytolysis [Recovering/Resolving]
  - Myocarditis [Recovering/Resolving]
  - Acute coronary syndrome [Recovering/Resolving]
  - Colitis [Recovering/Resolving]

NARRATIVE: CASE EVENT DATE: 20220519
